FAERS Safety Report 5897303-0 (Version None)
Quarter: 2008Q3

REPORT INFORMATION
  Report Type: 
  Country: None (occurrence: None)
  Receive Date: 20080904
  Receipt Date: 20071203
  Transmission Date: 20090109
  Serious: Yes (Hospitalization)
  Sender: FDA-Public Use
  Company Number: TNZUS200700149

PATIENT
  Age: 72 Year
  Sex: Female

DRUGS (3)
  1. INNOHEP [Suspect]
     Indication: VENOUS THROMBOSIS LIMB
     Dosage: (9000 IU, DAILY)
  2. BEVACIZUMAB(BEVACIZUMAB) [Suspect]
     Indication: NEOPLASM MALIGNANT
  3. GEMCITABINE [Suspect]
     Indication: NEOPLASM MALIGNANT

REACTIONS (1)
  - BRAIN STEM HAEMORRHAGE [None]
